FAERS Safety Report 25786138 (Version 1)
Quarter: 2025Q3

REPORT INFORMATION
  Report Type: Spontaneous
  Country: US (occurrence: None)
  Receive Date: 20250909
  Receipt Date: 20250909
  Transmission Date: 20251020
  Serious: No
  Sender: FDA-CTU
  Company Number: None

PATIENT
  Age: 33 Year
  Sex: Female
  Weight: 57.15 kg

DRUGS (3)
  1. AMLODIPINE BESYLATE [Suspect]
     Active Substance: AMLODIPINE BESYLATE
     Indication: Hypertension
     Dosage: OTHER QUANTITY : 1 TABLET(S);?FREQUENCY : DAILY;?
     Route: 048
     Dates: start: 20240809, end: 20250909
  2. ROSUVASTATIN [Concomitant]
     Active Substance: ROSUVASTATIN
  3. Topical Tretinoin cream 0.05% [Concomitant]

REACTIONS (4)
  - Peripheral swelling [None]
  - Joint swelling [None]
  - Petechiae [None]
  - Stasis dermatitis [None]

NARRATIVE: CASE EVENT DATE: 20250801
